FAERS Safety Report 9517396 (Version 1)
Quarter: 2013Q1

REPORT INFORMATION
  Report Type: Spontaneous
  Country: US (occurrence: None)
  Receive Date: 20130305
  Receipt Date: 20130305
  Transmission Date: 20140127
  Serious: Yes (Other)
  Sender: FDA-Public Use
  Company Number: 163-21880-12050319

PATIENT
  Age: 75 Year
  Sex: Male

DRUGS (9)
  1. REVLIMID (LENALIDOMIDE) (CAPSULES) [Suspect]
     Indication: PLASMA CELL MYELOMA
     Dosage: X 21 CAPS
     Route: 048
     Dates: start: 20120316
  2. POTASSIUM (POTASSIUM) [Concomitant]
  3. NORVASC (AMLODIPINE BESILATE) [Concomitant]
  4. LISINOPRIL (LISINOPRIL) [Concomitant]
  5. MULTIVITAMIN FOR HIM (MULTIVITAMINS) [Concomitant]
  6. ASPIRIN (ACETYLSALICYLIC ACID) [Concomitant]
  7. AMLODIPINE BESYLATE (AMLODIPINE BESILATE) [Concomitant]
  8. DEXAMETHASONE (DEXAMETHASONE) [Concomitant]
  9. EXCEDRIN EXTRA STRENGTH (THOMAPYRIN N) [Concomitant]

REACTIONS (3)
  - Dizziness [None]
  - Balance disorder [None]
  - Asthenia [None]
